FAERS Safety Report 6894879-1 (Version None)
Quarter: 2010Q3

REPORT INFORMATION
  Report Type: 
  Country: None (occurrence: None)
  Receive Date: 20100730
  Receipt Date: 20100730
  Transmission Date: 20110219
  Serious: Yes (Disabling)
  Sender: FDA-Public Use
  Company Number: None

PATIENT
  Sex: Male
  Weight: 124.7392 kg

DRUGS (1)
  1. LIPITOR [Suspect]
     Dosage: 20 MG 1 PER DA
     Dates: start: 20100409, end: 20100508

REACTIONS (3)
  - FATIGUE [None]
  - MUSCULAR WEAKNESS [None]
  - PAIN [None]
